FAERS Safety Report 4832560-0 (Version None)
Quarter: 2005Q4

REPORT INFORMATION
  Report Type: 
  Country: None (occurrence: None)
  Receive Date: 20051117
  Receipt Date: 20051103
  Transmission Date: 20060501
  Serious: Yes (Other)
  Sender: FDA-Public Use
  Company Number: 2005150845

PATIENT
  Age: 40 Year
  Sex: Female

DRUGS (1)
  1. LISTERINE (MENTHOL, METHYL SALICYLATE, EUCALYPTOL, THYMOL) [Suspect]
     Indication: EUPHORIC MOOD
     Dosage: 1/2 A BOTTLE ONCE, ORAL
     Route: 048
     Dates: start: 20051030, end: 20051030

REACTIONS (2)
  - FEELING ABNORMAL [None]
  - INTENTIONAL DRUG MISUSE [None]
